FAERS Safety Report 5084167-0 (Version None)
Quarter: 2006Q3

REPORT INFORMATION
  Report Type: 
  Country: None (occurrence: None)
  Receive Date: 20060821
  Receipt Date: 20060630
  Transmission Date: 20061208
  Serious: Yes (Life-Threatening, Hospitalization)
  Sender: FDA-Public Use
  Company Number: US-BAYER-200612770BCC

PATIENT
  Age: 67 Year
  Sex: Male
  Weight: 75 kg

DRUGS (5)
  1. ALEVE [Suspect]
     Indication: BACK PAIN
     Dosage: TOTAL DAILY DOSE: 220 MG  UNIT DOSE: 220 MG
     Route: 048
     Dates: start: 20060625, end: 20060625
  2. NEXIUM [Concomitant]
     Dates: start: 20030101
  3. PRAVACHOL [Concomitant]
  4. ASPIRIN [Concomitant]
     Dates: start: 20020101
  5. VYTORIN [Concomitant]
     Dates: start: 20020101

REACTIONS (12)
  - ANAPHYLACTIC SHOCK [None]
  - CHEST PAIN [None]
  - CONVULSION [None]
  - CORONARY ARTERY OCCLUSION [None]
  - ERYTHEMA [None]
  - FOAMING AT MOUTH [None]
  - LOSS OF CONSCIOUSNESS [None]
  - OEDEMA PERIPHERAL [None]
  - PRURITUS [None]
  - PULSE ABSENT [None]
  - RESPIRATORY ARREST [None]
  - URTICARIA [None]
